FAERS Safety Report 9307185 (Version 1)
Quarter: 2013Q2

REPORT INFORMATION
  Report Type: Spontaneous
  Country: GB (occurrence: GB)
  Receive Date: 20130524
  Receipt Date: 20130524
  Transmission Date: 20140414
  Serious: Yes (Other)
  Sender: FDA-Public Use
  Company Number: GB-ROCHE-1225365

PATIENT
  Age: 61 Year
  Sex: Female

DRUGS (4)
  1. RITUXIMAB [Suspect]
     Indication: PRODUCT USED FOR UNKNOWN INDICATION
     Route: 065
     Dates: start: 20111130, end: 20111201
  2. RITUXIMAB [Suspect]
     Route: 065
     Dates: start: 20111130
  3. BENDAMUSTINE HYDROCHLORIDE [Suspect]
     Indication: LYMPHOMA
     Route: 065
     Dates: start: 201111
  4. ALLOPURINOL [Concomitant]

REACTIONS (3)
  - Face oedema [Recovered/Resolved]
  - Mucosal inflammation [Recovered/Resolved]
  - Skin reaction [Recovered/Resolved]
